FAERS Safety Report 8516765-3 (Version None)
Quarter: 2012Q3

REPORT INFORMATION
  Report Type: 
  Country: None (occurrence: None)
  Receive Date: 20120706
  Receipt Date: 20120628
  Transmission Date: 20120928
  Serious: Yes (Death, Hospitalization)
  Sender: FDA-Public Use
  Company Number: 2012HGS-003672

PATIENT
  Age: 29 Year
  Sex: Female
  Weight: 81.6475 kg

DRUGS (19)
  1. CALCIUM CARBONATE [Concomitant]
  2. FLOVENT [Concomitant]
  3. ALBUTEROL [Concomitant]
  4. CYCLOPHOSPHAMIDE [Concomitant]
  5. BENLYSTA [Suspect]
     Indication: SYSTEMIC LUPUS ERYTHEMATOSUS
     Dosage: 10 MG/KG, 1 IN 4 WK, INTRAVENOUS DRIP
     Route: 041
     Dates: start: 20120127, end: 20120420
  6. PREDNISONE [Concomitant]
  7. OXYCODONE HCL [Concomitant]
  8. SAVELLA [Concomitant]
  9. IMITREX [Concomitant]
  10. MULTIVITAMIN (VIGRAN) (ERGOCALCIFEROL, ASCORBIC ACID, PYRIDOXINE HYDRO [Concomitant]
  11. PATANOL [Concomitant]
  12. CELLCEPT [Concomitant]
  13. TRAMADOL HYDROCHLORIDE [Concomitant]
  14. ACETAMINOPHEN [Concomitant]
  15. LYRICA [Concomitant]
  16. METHOTREXATE [Concomitant]
  17. BENLYSTA [Suspect]
  18. GLUCOSAMINE (GLUCOSAMINE SULFATE) [Concomitant]
  19. DOCUSATE SODIUM [Concomitant]

REACTIONS (9)
  - CARDIOGENIC SHOCK [None]
  - BACTERIAL TEST POSITIVE [None]
  - CARDIAC FAILURE CONGESTIVE [None]
  - PROTEIN URINE PRESENT [None]
  - SPEECH DISORDER [None]
  - MULTI-ORGAN FAILURE [None]
  - MITRAL VALVE INCOMPETENCE [None]
  - RED BLOOD CELLS URINE POSITIVE [None]
  - GENERAL PHYSICAL HEALTH DETERIORATION [None]
